FAERS Safety Report 24205238 (Version 1)
Quarter: 2024Q3

REPORT INFORMATION
  Report Type: Spontaneous
  Country: US (occurrence: US)
  Receive Date: 20240813
  Receipt Date: 20240813
  Transmission Date: 20241017
  Serious: Yes (Hospitalization, Other)
  Sender: VIFOR
  Company Number: US-Vifor (International) Inc.-VIT-2024-07112

PATIENT
  Age: 55 Year
  Sex: Male
  Weight: 91.5 kg

DRUGS (3)
  1. MIRCERA [Suspect]
     Active Substance: METHOXY POLYETHYLENE GLYCOL-EPOETIN BETA
     Indication: Nephrogenic anaemia
     Route: 040
  2. MIRCERA [Suspect]
     Active Substance: METHOXY POLYETHYLENE GLYCOL-EPOETIN BETA
     Dosage: DECREASED DOSE
     Route: 040
     Dates: start: 20240412, end: 20240722
  3. CALCITRIOL [Concomitant]
     Active Substance: CALCITRIOL
     Dates: start: 20240712

REACTIONS (3)
  - Drug hypersensitivity [Unknown]
  - Hyperhidrosis [Unknown]
  - Blood pressure increased [Recovering/Resolving]

NARRATIVE: CASE EVENT DATE: 20240722
